FAERS Safety Report 4728144-5 (Version None)
Quarter: 2005Q3

REPORT INFORMATION
  Report Type: 
  Country: None (occurrence: None)
  Receive Date: 20050727
  Receipt Date: 20050714
  Transmission Date: 20060218
  Serious: Yes (Other)
  Sender: FDA-Public Use
  Company Number: 2005102209

PATIENT
  Age: 27 Year
  Sex: Female

DRUGS (2)
  1. PROVERA [Suspect]
     Indication: MENSTRUATION IRREGULAR
     Dosage: 10 MG (10 MG, SINGLE, EVERYDAY), ORAL
     Route: 048
     Dates: start: 20050707, end: 20050710
  2. LEVONORGESTREL AND ETHINYL ESTRADIOL [Concomitant]

REACTIONS (7)
  - BLISTER [None]
  - DYSPNOEA [None]
  - OESOPHAGEAL PAIN [None]
  - OESOPHAGEAL SPASM [None]
  - PRURITUS GENERALISED [None]
  - PYREXIA [None]
  - RASH ERYTHEMATOUS [None]
